FAERS Safety Report 24735697 (Version 1)
Quarter: 2024Q4

REPORT INFORMATION
  Report Type: Spontaneous
  Country: US (occurrence: US)
  Receive Date: 20241216
  Receipt Date: 20241216
  Transmission Date: 20250115
  Serious: No
  Sender: ENDO
  Company Number: ENDG23-05817

PATIENT
  Age: 58 Year
  Sex: Female

DRUGS (1)
  1. MINOXIDIL [Suspect]
     Active Substance: MINOXIDIL
     Indication: Alopecia
     Dosage: UNK UNKNOWN, UNKNOWN (ONE-FOURTH OF THE 2.5 MG TABLETS)
     Route: 065
     Dates: start: 202311

REACTIONS (2)
  - Urticaria [Unknown]
  - Off label use [Unknown]

NARRATIVE: CASE EVENT DATE: 20231101
